FAERS Safety Report 7124625-8 (Version None)
Quarter: 2010Q4

REPORT INFORMATION
  Report Type: 
  Country: None (occurrence: None)
  Receive Date: 20101122
  Receipt Date: 20101122
  Transmission Date: 20110411
  Serious: Yes (Other)
  Sender: FDA-Public Use
  Company Number: None

PATIENT
  Age: 69 Year
  Sex: Female
  Weight: 68.0396 kg

DRUGS (2)
  1. AVELOX [Suspect]
     Indication: VIRAL UPPER RESPIRATORY TRACT INFECTION
     Dosage: DAILY FIVE DAYS PO
     Route: 048
     Dates: start: 20101113, end: 20101118
  2. PREDNISONE [Suspect]
     Dosage: DAILY 30, 20, 10 FIVE DAYS PO
     Route: 048
     Dates: start: 20101113, end: 20101127

REACTIONS (3)
  - CONFUSIONAL STATE [None]
  - HYPERHIDROSIS [None]
  - NAUSEA [None]
